FAERS Safety Report 14133967 (Version 1)
Quarter: 2017Q4

REPORT INFORMATION
  Report Type: Spontaneous
  Country: US (occurrence: None)
  Receive Date: 20171027
  Receipt Date: 20171027
  Transmission Date: 20180321
  Serious: Yes (Hospitalization)
  Sender: FDA-Public Use
  Company Number: None

PATIENT
  Age: 75 Year
  Sex: Male

DRUGS (8)
  1. METOLAZONE. [Concomitant]
     Active Substance: METOLAZONE
  2. WARFARIN [Concomitant]
     Active Substance: WARFARIN
  3. EXJADE [Suspect]
     Active Substance: DEFERASIROX
     Indication: MYELODYSPLASTIC SYNDROME
     Route: 048
     Dates: start: 20171005, end: 20171010
  4. METFORMIN [Concomitant]
     Active Substance: METFORMIN HYDROCHLORIDE
  5. FUROSEMIDE. [Concomitant]
     Active Substance: FUROSEMIDE
  6. LEVOTHYROXIN [Concomitant]
     Active Substance: LEVOTHYROXINE
  7. DILTIAZEM. [Concomitant]
     Active Substance: DILTIAZEM
  8. POTASSIUM [Concomitant]
     Active Substance: POTASSIUM

REACTIONS (5)
  - Dizziness [None]
  - Retching [None]
  - Aphonia [None]
  - Gait disturbance [None]
  - Somnolence [None]

NARRATIVE: CASE EVENT DATE: 20171006
